FAERS Safety Report 20080824 (Version 2)
Quarter: 2021Q4

REPORT INFORMATION
  Report Type: Report from Study
  Country: AU (occurrence: None)
  Receive Date: 20211117
  Receipt Date: 20211125
  Transmission Date: 20220304
  Serious: Yes (Hospitalization)
  Sender: FDA-Public Use
  Company Number: AU-ROCHE-2923417

PATIENT
  Age: 73 Year
  Sex: Male
  Weight: 93 kg

DRUGS (7)
  1. OBINUTUZUMAB [Suspect]
     Active Substance: OBINUTUZUMAB
     Indication: Follicular lymphoma
     Dosage: LAST DOSE PRIOR TO SAE ON 27/APR/2021, ?15/DEC/2020, 22/DEC/2020, 05/JAN/2021, 02/FEB/2021, 03/MAR/2
     Route: 042
     Dates: start: 20201208, end: 20210622
  2. ZANUBRUTINIB [Suspect]
     Active Substance: ZANUBRUTINIB
     Indication: Follicular lymphoma
     Dosage: LAST DOSE PRIOR TO SAE ON 27/APR/2021
     Route: 048
     Dates: start: 20201208, end: 20210622
  3. MORPHINE [Concomitant]
     Active Substance: MORPHINE
  4. SODIUM PHOSPHATE, MONOBASIC, ANHYDROUS [Concomitant]
     Active Substance: SODIUM PHOSPHATE, MONOBASIC, ANHYDROUS
  5. PIPERACILLIN AND TAZOBACTAM [Concomitant]
     Active Substance: PIPERACILLIN SODIUM\TAZOBACTAM SODIUM
  6. ENOXAPARIN SODIUM [Concomitant]
     Active Substance: ENOXAPARIN SODIUM
  7. AMLODIPINE [Concomitant]
     Active Substance: AMLODIPINE BESYLATE

REACTIONS (2)
  - Abdominal infection [Recovered/Resolved]
  - Cholangiocarcinoma [Recovered/Resolved]

NARRATIVE: CASE EVENT DATE: 20210728
